FAERS Safety Report 12700677 (Version 1)
Quarter: 2016Q3

REPORT INFORMATION
  Report Type: Spontaneous
  Country: US (occurrence: US)
  Receive Date: 20160830
  Receipt Date: 20160830
  Transmission Date: 20161109
  Serious: No
  Sender: FDA-Public Use
  Company Number: US-SA-2016SA071245

PATIENT
  Age: 70 Year
  Sex: Female

DRUGS (2)
  1. MULTAQ [Suspect]
     Active Substance: DRONEDARONE
     Indication: ATRIAL FIBRILLATION
     Route: 065
     Dates: start: 20160328
  2. FLECAINIDE [Concomitant]
     Active Substance: FLECAINIDE

REACTIONS (5)
  - Tachycardia [Recovering/Resolving]
  - Migraine [Recovered/Resolved]
  - Pain in jaw [Recovered/Resolved]
  - Dyspepsia [Recovering/Resolving]
  - Alopecia [Unknown]

NARRATIVE: CASE EVENT DATE: 20160331
